FAERS Safety Report 18547895 (Version 1)
Quarter: 2020Q4

REPORT INFORMATION
  Report Type: Report from Study
  Country: BR (occurrence: BR)
  Receive Date: 20201125
  Receipt Date: 20201125
  Transmission Date: 20210114
  Serious: Yes (Other)
  Sender: FDA-Public Use
  Company Number: NVSC2020BR311450

PATIENT
  Sex: Female

DRUGS (2)
  1. DIOVAN [Suspect]
     Active Substance: VALSARTAN
     Indication: PRODUCT USED FOR UNKNOWN INDICATION
     Dosage: 0.5 DF (SPLITTING 160 IN HALF), UNKNOWN
     Route: 065
  2. DIOVAN [Suspect]
     Active Substance: VALSARTAN
     Dosage: 1 DF (80, UNSPECIFIED UNITS), UNKNOWN
     Route: 065

REACTIONS (7)
  - Diarrhoea [Unknown]
  - Hypotension [Recovering/Resolving]
  - Wrong technique in product usage process [Unknown]
  - Weight decreased [Recovering/Resolving]
  - Neoplasm malignant [Unknown]
  - Malaise [Recovering/Resolving]
  - Dehydration [Unknown]
